FAERS Safety Report 4368706-0 (Version None)
Quarter: 2004Q2

REPORT INFORMATION
  Report Type: 
  Country: None (occurrence: None)
  Receive Date: 20040525
  Receipt Date: 20040512
  Transmission Date: 20050107
  Serious: Yes (Hospitalization, Other)
  Sender: FDA-Public Use
  Company Number: 2004213706DE

PATIENT
  Sex: Female

DRUGS (2)
  1. CELEBREX [Suspect]
     Indication: CERVICOBRACHIAL SYNDROME
     Dosage: ORAL
     Route: 048
     Dates: start: 20040510, end: 20040510
  2. DOXYCYCLINE [Concomitant]

REACTIONS (2)
  - ASPHYXIA [None]
  - RASH PRURITIC [None]
